FAERS Safety Report 9360751 (Version 1)
Quarter: 2013Q2

REPORT INFORMATION
  Report Type: Spontaneous
  Country: FR (occurrence: None)
  Receive Date: 20130618
  Receipt Date: 20130618
  Transmission Date: 20140414
  Serious: Yes (Other)
  Sender: FDA-Public Use
  Company Number: FR-CLINGEN HEALTHCARE LIMITED003058

PATIENT
  Age: 33 Year
  Sex: Female

DRUGS (1)
  1. FOSCAVIR (FOSCAVIR) [Suspect]
     Indication: CYTOMEGALOVIRUS INFECTION

REACTIONS (2)
  - Renal failure [None]
  - Haemodialysis [None]
